FAERS Safety Report 5382981-5 (Version None)
Quarter: 2007Q3

REPORT INFORMATION
  Report Type: 
  Country: None (occurrence: None)
  Receive Date: 20070710
  Receipt Date: 20070703
  Transmission Date: 20080115
  Serious: Yes (Hospitalization, Other)
  Sender: FDA-Public Use
  Company Number: B0471617A

PATIENT
  Age: 55 Year
  Sex: Male
  Weight: 106 kg

DRUGS (5)
  1. ZIAGEN [Suspect]
     Indication: HIV INFECTION
     Dosage: 300MG TWICE PER DAY
     Route: 048
     Dates: start: 20070315, end: 20070501
  2. WARFARIN SODIUM [Concomitant]
     Route: 048
  3. NEVIRAPINE [Concomitant]
     Dosage: 200MG TWICE PER DAY
     Route: 048
  4. LAMIVUDINE [Concomitant]
     Dosage: 150MG TWICE PER DAY
     Route: 048
  5. AMOXYL [Concomitant]
     Dosage: 250MG THREE TIMES PER DAY
     Route: 048
     Dates: start: 20070410, end: 20070415

REACTIONS (4)
  - CREATINE PHOSPHOKINASE DECREASED [None]
  - HEPATITIS [None]
  - LIVER FUNCTION TEST ABNORMAL [None]
  - MALAISE [None]
